FAERS Safety Report 8000471-8 (Version None)
Quarter: 2011Q4

REPORT INFORMATION
  Report Type: 
  Country: None (occurrence: None)
  Receive Date: 20111123
  Receipt Date: 20110817
  Transmission Date: 20120403
  Serious: Yes (Other)
  Sender: FDA-Public Use
  Company Number: 331260

PATIENT
  Sex: Female
  Weight: 108.2 kg

DRUGS (6)
  1. VAGIFEM LD (ESTRADIOL HEMIHYDRATE) [Concomitant]
  2. VICTOZA [Suspect]
     Indication: GLUCOSE TOLERANCE TEST ABNORMAL
     Dosage: 1.2 MG, QD, SUBCUTANEOUS
     Route: 058
     Dates: start: 20101118, end: 20110601
  3. VICTOZA [Suspect]
     Indication: HYPERGLYCAEMIA
     Dosage: 1.2 MG, QD, SUBCUTANEOUS
     Route: 058
     Dates: start: 20101118, end: 20110601
  4. BENICAR HCT [Concomitant]
  5. SINGULAIR [Concomitant]
  6. AMBIEN [Concomitant]

REACTIONS (1)
  - PANCREATITIS ACUTE [None]
